FAERS Safety Report 18585588 (Version 3)
Quarter: 2022Q1

REPORT INFORMATION
  Report Type: Report from Study
  Country: DE (occurrence: DE)
  Receive Date: 20201207
  Receipt Date: 20220302
  Transmission Date: 20220423
  Serious: Yes (Congenital Anomaly)
  Sender: FDA-Public Use
  Company Number: None

PATIENT

DRUGS (1)
  1. COSENTYX [Suspect]
     Active Substance: SECUKINUMAB
     Indication: Foetal exposure during pregnancy
     Dosage: UNK (PATERNAL EXPOSURE DURING PREGNANCY)
     Route: 050

REACTIONS (2)
  - Single functional kidney [Not Recovered/Not Resolved]
  - Exposure via father [Unknown]

NARRATIVE: CASE EVENT DATE: 20200101
